FAERS Safety Report 5134072-6 (Version None)
Quarter: 2006Q4

REPORT INFORMATION
  Report Type: 
  Country: None (occurrence: None)
  Receive Date: 20061019
  Receipt Date: 20061006
  Transmission Date: 20070319
  Serious: Yes (Other)
  Sender: FDA-Public Use
  Company Number: 2006124365

PATIENT
  Age: 50 Year
  Sex: Female

DRUGS (2)
  1. LINCOMYCIN HYDROCHLORIDE [Suspect]
     Indication: CELLULITIS
     Dosage: 600 MG (600 MG)
  2. METHYLPREDNISOLONE [Suspect]
     Dosage: 40 MG (40 MG)

REACTIONS (1)
  - FACE OEDEMA [None]
